FAERS Safety Report 10371234 (Version 2)
Quarter: 2014Q3

REPORT INFORMATION
  Report Type: Spontaneous
  Country: US (occurrence: US)
  Receive Date: 20140808
  Receipt Date: 20140827
  Transmission Date: 20150326
  Serious: No
  Sender: FDA-Public Use
  Company Number: US-PFIZER INC-2014220050

PATIENT
  Sex: Female
  Weight: 86.62 kg

DRUGS (1)
  1. NARDIL [Suspect]
     Active Substance: PHENELZINE SULFATE
     Dosage: 15 MG, 1X/DAY
     Route: 048
     Dates: start: 1986

REACTIONS (1)
  - Hypothyroidism [Not Recovered/Not Resolved]
